FAERS Safety Report 25245235 (Version 1)
Quarter: 2025Q2

REPORT INFORMATION
  Report Type: Spontaneous
  Country: US (occurrence: US)
  Receive Date: 20250428
  Receipt Date: 20250428
  Transmission Date: 20250717
  Serious: Yes (Hospitalization)
  Sender: MYLAN
  Company Number: US-MYLANLABS-2025M1034550

PATIENT
  Age: 71 Year
  Sex: Male

DRUGS (1)
  1. AMIODARONE [Suspect]
     Active Substance: AMIODARONE
     Indication: Ventricular tachycardia
     Dosage: 400 MILLIGRAM, QD

REACTIONS (6)
  - Hepatotoxicity [Recovered/Resolved]
  - Hepatic cirrhosis [Recovered/Resolved]
  - Hepatic failure [Recovered/Resolved]
  - Portal hypertension [Recovered/Resolved]
  - Ascites [Recovered/Resolved]
  - Renal failure [Recovered/Resolved]
